FAERS Safety Report 10920290 (Version 1)
Quarter: 2015Q1

REPORT INFORMATION
  Report Type: Spontaneous
  Country: US (occurrence: None)
  Receive Date: 20150313
  Receipt Date: 20150313
  Transmission Date: 20150721
  Serious: Yes (Life-Threatening, Disabling, Other)
  Sender: FDA-Public Use
  Company Number: None

PATIENT
  Age: 65 Year
  Sex: Female
  Weight: 86.18 kg

DRUGS (8)
  1. OMEPRAZOLE. [Concomitant]
     Active Substance: OMEPRAZOLE
  2. LACTULOSE. [Concomitant]
     Active Substance: LACTULOSE
  3. SOVALDI [Suspect]
     Active Substance: SOFOSBUVIR
     Indication: HEPATITIS C
     Dosage: 1 X DAY EACH 2 TOTAL
     Dates: start: 20140601, end: 20140606
  4. VITAMIN C [Concomitant]
     Active Substance: ASCORBIC ACID
  5. CALCIUM/MAGNES [Concomitant]
  6. OLYSIO [Suspect]
     Active Substance: SIMEPREVIR
  7. NADOLOL. [Concomitant]
     Active Substance: NADOLOL
  8. SENIOR MULTI VITAMINS [Concomitant]

REACTIONS (12)
  - Balance disorder [None]
  - Arthralgia [None]
  - Movement disorder [None]
  - Fatigue [None]
  - Diarrhoea [None]
  - Pain [None]
  - Muscular weakness [None]
  - Hepatic cancer [None]
  - Pain in extremity [None]
  - Asthenia [None]
  - Abdominal pain upper [None]
  - Somnolence [None]

NARRATIVE: CASE EVENT DATE: 20140601
